FAERS Safety Report 8890422 (Version 2)
Quarter: 2014Q2

REPORT INFORMATION
  Report Type: Spontaneous
  Country: US (occurrence: US)
  Receive Date: 20121106
  Receipt Date: 20140423
  Transmission Date: 20141212
  Serious: Yes (Hospitalization, Other)
  Sender: FDA-Public Use
  Company Number: US-ALET-2012-18965

PATIENT
  Age: 23 Year
  Sex: Male

DRUGS (4)
  1. LAMOTRIGINE (UNKNOWN) [Suspect]
     Indication: OVERDOSE
     Dosage: 13500 MG, SINGLE (3-MONTH SUPPLY)
     Route: 048
  2. LAMOTRIGINE (UNKNOWN) [Suspect]
     Indication: PRODUCT USED FOR UNKNOWN INDICATION
     Dosage: 150 MG, DAILY
     Route: 065
  3. FLUDROCORTISON [Suspect]
     Indication: OVERDOSE
     Dosage: 18 MG, SINGLE (3-MONTH SUPPLY)
     Route: 048
  4. FLUDROCORTISON [Suspect]
     Dosage: 0.1 MG, BID
     Route: 048

REACTIONS (10)
  - Toxicity to various agents [Recovered/Resolved]
  - Electrocardiogram QRS complex prolonged [Recovered/Resolved]
  - Myoclonus [Recovered/Resolved]
  - Generalised tonic-clonic seizure [Recovered/Resolved]
  - Agitation [Recovered/Resolved]
  - Tachypnoea [Recovered/Resolved]
  - Lethargy [Recovered/Resolved]
  - Ataxia [Recovered/Resolved]
  - Anxiety [Recovered/Resolved]
  - Overdose [Unknown]
